FAERS Safety Report 10441776 (Version 1)
Quarter: 2014Q3

REPORT INFORMATION
  Report Type: Spontaneous
  Country: GB (occurrence: GB)
  Receive Date: 20140909
  Receipt Date: 20140909
  Transmission Date: 20150326
  Serious: Yes (Other)
  Sender: FDA-Public Use
  Company Number: PHHY2014GB110544

PATIENT
  Sex: Female

DRUGS (1)
  1. TEMAZEPAM SANDOZ [Suspect]
     Active Substance: TEMAZEPAM
     Indication: SLEEP DISORDER
     Dosage: 10 MG, QD; ONE AT NIGHT
     Route: 048
     Dates: start: 20140802, end: 20140803

REACTIONS (5)
  - Product substitution issue [Unknown]
  - Product quality issue [None]
  - Dizziness [Recovered/Resolved]
  - Confusional state [Recovered/Resolved]
  - Malaise [Recovered/Resolved]

NARRATIVE: CASE EVENT DATE: 20140803
